FAERS Safety Report 11220645 (Version 4)
Quarter: 2015Q3

REPORT INFORMATION
  Report Type: Report from Study
  Country: US (occurrence: US)
  Receive Date: 20150626
  Receipt Date: 20150810
  Transmission Date: 20151125
  Serious: No
  Sender: FDA-Public Use
  Company Number: US-ALEXION PHARMACEUTICALS INC.-A201502251

PATIENT

DRUGS (2)
  1. SOLIRIS [Suspect]
     Active Substance: ECULIZUMAB
     Indication: HAEMOLYTIC URAEMIC SYNDROME
     Dosage: UNK
     Route: 042
  2. EPOGEN [Concomitant]
     Active Substance: ERYTHROPOIETIN
     Indication: PRODUCT USED FOR UNKNOWN INDICATION
     Dosage: UNK UNK, Q2W
     Route: 065

REACTIONS (8)
  - Blood creatinine abnormal [Unknown]
  - Headache [Not Recovered/Not Resolved]
  - Haemoglobin abnormal [Unknown]
  - Throat irritation [Not Recovered/Not Resolved]
  - Platelet count abnormal [Unknown]
  - Stomatitis [Unknown]
  - Blood potassium increased [Recovering/Resolving]
  - Vulvovaginal mycotic infection [Not Recovered/Not Resolved]

NARRATIVE: CASE EVENT DATE: 201507
